FAERS Safety Report 21164964 (Version 1)
Quarter: 2022Q3

REPORT INFORMATION
  Report Type: Spontaneous
  Country: US (occurrence: US)
  Receive Date: 20220803
  Receipt Date: 20220803
  Transmission Date: 20221026
  Serious: No
  Sender: FDA-Public Use
  Company Number: US-CADILA HEALTHCARE LIMITED-US-ZYDUS-075091

PATIENT

DRUGS (3)
  1. PYRIDOSTIGMINE BROMIDE [Suspect]
     Active Substance: PYRIDOSTIGMINE BROMIDE
     Indication: Myasthenia gravis
     Dosage: 60 MILLIGRAM, QID
     Route: 048
     Dates: start: 201805, end: 201809
  2. PYRIDOSTIGMINE BROMIDE [Suspect]
     Active Substance: PYRIDOSTIGMINE BROMIDE
     Dosage: 60 MILLIGRAM, QID
     Route: 048
     Dates: start: 202110, end: 202201
  3. PREDNISONE [Concomitant]
     Active Substance: PREDNISONE
     Indication: Product used for unknown indication
     Dosage: UNK
     Route: 048

REACTIONS (4)
  - Drug ineffective [Recovered/Resolved]
  - Disturbance in attention [Recovering/Resolving]
  - Visual impairment [Recovering/Resolving]
  - Product substitution issue [Recovered/Resolved]

NARRATIVE: CASE EVENT DATE: 20211001
